FAERS Safety Report 8994692 (Version 1)
Quarter: 2012Q4

REPORT INFORMATION
  Report Type: Spontaneous
  Country: US (occurrence: None)
  Receive Date: 20121228
  Receipt Date: 20121228
  Transmission Date: 20130627
  Serious: Yes (Other)
  Sender: FDA-Public Use
  Company Number: None

PATIENT
  Age: 61 Year
  Sex: Female

DRUGS (13)
  1. SAPHRIS [Suspect]
     Indication: SLEEP DISORDER
  2. NORTRIPTYLINE [Concomitant]
  3. OMEPRAZOLE [Concomitant]
  4. LEFLUNOMIDE [Concomitant]
  5. HYOSCYAMINE [Concomitant]
  6. LISINOPRIL [Concomitant]
  7. DONEPEZIL [Concomitant]
  8. LAMOTRIGINE [Concomitant]
  9. PREDNISONE [Concomitant]
  10. SAVELLA [Concomitant]
  11. CLONAZEPAM [Concomitant]
  12. ADDERALL-GENERIC [Concomitant]
  13. VITAMIN D [Concomitant]

REACTIONS (1)
  - Mood altered [None]
